FAERS Safety Report 14639589 (Version 1)
Quarter: 2018Q1

REPORT INFORMATION
  Report Type: Spontaneous
  Country: FR (occurrence: FR)
  Receive Date: 20180315
  Receipt Date: 20180315
  Transmission Date: 20180509
  Serious: Yes (Other)
  Sender: FDA-Public Use
  Company Number: FR-MERCK KGAA-2043789

PATIENT
  Age: 70 Year
  Sex: Female

DRUGS (1)
  1. NOVOTHYROX [Suspect]
     Active Substance: LEVOTHYROXINE SODIUM
     Indication: POST PROCEDURAL HYPOTHYROIDISM
     Dates: start: 201704

REACTIONS (16)
  - Tinnitus [None]
  - Blood thyroid stimulating hormone decreased [None]
  - Fatigue [None]
  - Asthenia [None]
  - Somnolence [None]
  - Heart rate irregular [None]
  - Diarrhoea [None]
  - Fatigue [None]
  - Insomnia [None]
  - Hyperhidrosis [None]
  - Hypertension [None]
  - Alopecia [None]
  - Impaired driving ability [None]
  - Disturbance in attention [None]
  - Social avoidant behaviour [None]
  - Sleep disorder [None]

NARRATIVE: CASE EVENT DATE: 2017
